FAERS Safety Report 5289295-2 (Version None)
Quarter: 2007Q2

REPORT INFORMATION
  Report Type: 
  Country: None (occurrence: None)
  Receive Date: 20070406
  Receipt Date: 20070330
  Transmission Date: 20071010
  Serious: Yes (Death)
  Sender: FDA-Public Use
  Company Number: GB-BRACCO-BRO-010263

PATIENT
  Sex: Female
  Weight: 70 kg

DRUGS (17)
  1. NIOPAM [Suspect]
     Indication: ARTERIOVENOUS FISTULA SITE COMPLICATION
     Route: 042
     Dates: start: 20060601, end: 20060601
  2. NIOPAM [Suspect]
     Route: 042
     Dates: start: 20060601, end: 20060601
  3. ALFACALCIDOL [Concomitant]
     Route: 050
  4. ALFACALCIDOL [Concomitant]
     Route: 050
  5. AMITRIPTYLINE HCL [Concomitant]
     Route: 050
  6. EPOGEN [Concomitant]
     Route: 050
  7. CO-DYDRAMOL [Concomitant]
     Route: 050
  8. KETOVITE                           /00479801/ [Concomitant]
     Route: 050
  9. OMEPRAZOLE [Concomitant]
     Route: 050
  10. ALLOPURINOL [Concomitant]
     Route: 050
  11. ATORVASTATIN CALCIUM [Concomitant]
     Route: 050
  12. PILOCARPINE 4% [Concomitant]
     Route: 031
  13. RIMEXOLONE 1% [Concomitant]
     Route: 031
  14. BECLOMETHASONE AQUEOUS [Concomitant]
     Route: 050
  15. FUROSEMIDE [Concomitant]
     Route: 050
  16. IBERSARTAN [Concomitant]
     Route: 050
  17. LERCANIDIPINE [Concomitant]
     Route: 050

REACTIONS (5)
  - ANAPHYLACTIC REACTION [None]
  - ARTERIOSCLEROSIS CORONARY ARTERY [None]
  - CARDIO-RESPIRATORY ARREST [None]
  - CONTRAST MEDIA REACTION [None]
  - CONVULSION [None]
